FAERS Safety Report 5753328-7 (Version None)
Quarter: 2008Q2

REPORT INFORMATION
  Report Type: 
  Country: None (occurrence: None)
  Receive Date: 20080530
  Receipt Date: 20080520
  Transmission Date: 20081010
  Serious: Yes (Hospitalization)
  Sender: FDA-Public Use
  Company Number: US-ABBOTT-06P-163-0335092-00

PATIENT
  Sex: Female
  Weight: 85 kg

DRUGS (31)
  1. HUMIRA [Suspect]
     Indication: CROHN'S DISEASE
     Route: 058
     Dates: start: 20050803
  2. MEDROXYPROGESTERONE ACETATE [Concomitant]
     Indication: MENSTRUATION IRREGULAR
     Dates: start: 20060301
  3. PANTOPRAZOLE [Concomitant]
     Indication: DYSPEPSIA
     Dates: start: 20000101
  4. MESALAMINE [Concomitant]
     Indication: CROHN'S DISEASE
     Dates: start: 20050520, end: 20060501
  5. PREDNISONE TAB [Concomitant]
     Indication: CROHN'S DISEASE
     Dates: start: 20050520, end: 20050831
  6. PREDNISONE TAB [Concomitant]
     Dates: start: 20050831
  7. PREDNISONE TAB [Concomitant]
     Dates: start: 20050908, end: 20050914
  8. PREDNISONE TAB [Concomitant]
     Dates: start: 20050914, end: 20050921
  9. PREDNISONE TAB [Concomitant]
     Dates: start: 20050921, end: 20050928
  10. PREDNISONE TAB [Concomitant]
     Dates: start: 20050928, end: 20051005
  11. PREDNISONE TAB [Concomitant]
     Dates: start: 20051007
  12. LEVETIRACETAM [Concomitant]
     Indication: CONVULSION PROPHYLAXIS
     Dates: start: 20010201, end: 20060118
  13. MEDROXYPROGESTERONE ACETATE [Concomitant]
     Dates: start: 20060301
  14. TEMAZEPAM [Concomitant]
     Indication: SLEEP DISORDER THERAPY
     Dates: start: 20030101
  15. VENLAFAXINE HYDROCHLORIDE [Concomitant]
     Indication: HEADACHE
     Dates: start: 20041201
  16. PROPACET 100 [Concomitant]
     Indication: ABDOMINAL PAIN
     Dosage: 100/650
     Dates: start: 20050520
  17. LORAZEPAM [Concomitant]
     Indication: HEADACHE
     Dates: start: 20050520
  18. LORAZEPAM [Concomitant]
     Indication: ANXIETY
  19. TOCOPHEROL CONCENTRATE CAP [Concomitant]
     Indication: MEDICAL DIET
     Dates: start: 20030101
  20. ASCORBIC ACID [Concomitant]
     Indication: MEDICAL DIET
     Dates: start: 20030101, end: 20060523
  21. ANUSOL [Concomitant]
     Indication: SKIN INFLAMMATION
     Dates: start: 20050715
  22. IMITREX [Concomitant]
     Indication: MIGRAINE
     Dates: start: 20050726
  23. VITIS VINIFERA EXTRACT [Concomitant]
     Indication: PHYTOTHERAPY
     Dates: start: 20050704, end: 20060523
  24. NULEV [Concomitant]
     Indication: ABDOMINAL PAIN
     Dates: start: 20050824
  25. NULEV [Concomitant]
  26. OXYCOCET [Concomitant]
     Indication: PAIN
     Dosage: 2.5/325 MG PRN
     Dates: start: 20050904
  27. FLAGYL [Concomitant]
     Indication: PERIANAL ABSCESS
     Dates: start: 20050904, end: 20050909
  28. PHENERGAN [Concomitant]
     Indication: NAUSEA
     Route: 050
     Dates: start: 20050928, end: 20050928
  29. PHENERGAN [Concomitant]
     Dates: start: 20050929
  30. LEVOFLOXACIN [Concomitant]
     Indication: KIDNEY INFECTION
     Dates: start: 20050928, end: 20051002
  31. CIPROFLOXACIN HCL [Concomitant]
     Dates: start: 20050904, end: 20050909

REACTIONS (1)
  - VULVAL ABSCESS [None]
